FAERS Safety Report 6471049-2 (Version None)
Quarter: 2009Q4

REPORT INFORMATION
  Report Type: 
  Country: None (occurrence: None)
  Receive Date: 20091201
  Receipt Date: 20091116
  Transmission Date: 20100525
  Serious: Yes (Other)
  Sender: FDA-Public Use
  Company Number: TRP_06577_2009

PATIENT
  Sex: Female

DRUGS (4)
  1. RIBAVARIN [Suspect]
     Indication: HEPATITIS C
     Dosage: (1200 MG, DAILY)
     Dates: start: 20091007
  2. PEGASYS [Suspect]
     Indication: HEPATITIS C
     Dosage: (180 ?G 1X/WEEK)
     Dates: start: 20090818
  3. COPEGUS [Suspect]
     Indication: HEPATITIS C
     Dates: start: 20090818, end: 20091001
  4. OTH.DRUGS FOR OBSTRUC.AIRWAY DISEASES, INHALA [Concomitant]

REACTIONS (21)
  - ABASIA [None]
  - BACK PAIN [None]
  - BLISTER [None]
  - CHEST PAIN [None]
  - CHRONIC OBSTRUCTIVE PULMONARY DISEASE [None]
  - CONFUSIONAL STATE [None]
  - COUGH [None]
  - DEPRESSION [None]
  - DRUG DOSE OMISSION [None]
  - DRUG HYPERSENSITIVITY [None]
  - DYSPNOEA [None]
  - EPISTAXIS [None]
  - EYE IRRITATION [None]
  - INFECTION [None]
  - LIP BLISTER [None]
  - NAUSEA [None]
  - OROPHARYNGEAL BLISTERING [None]
  - PYREXIA [None]
  - RASH [None]
  - THROAT TIGHTNESS [None]
  - URINARY RETENTION [None]
